FAERS Safety Report 7772324-1 (Version None)
Quarter: 2011Q3

REPORT INFORMATION
  Report Type: 
  Country: None (occurrence: None)
  Receive Date: 20110922
  Receipt Date: 20100915
  Transmission Date: 20111222
  Serious: No
  Sender: FDA-Public Use
  Company Number: US-ASTRAZENECA-2007UW19306

PATIENT
  Age: 15275 Day
  Sex: Female
  Weight: 114.8 kg

DRUGS (34)
  1. SEROQUEL [Suspect]
     Route: 048
     Dates: start: 20070201
  2. SEROQUEL [Suspect]
     Route: 048
     Dates: start: 20070201
  3. SEROQUEL [Suspect]
     Indication: DEPRESSION
     Route: 048
     Dates: start: 20020601, end: 20070201
  4. SEROQUEL [Suspect]
     Dosage: 100 MG TO 600 MG
     Route: 048
     Dates: start: 20050406
  5. ZYPREXA [Concomitant]
     Indication: BIPOLAR DISORDER
     Dosage: 1 MG
  6. KLONOPIN [Concomitant]
     Route: 048
     Dates: start: 20050405
  7. VYTORIN [Concomitant]
     Route: 048
     Dates: start: 20061122
  8. LEXAPRO [Concomitant]
     Route: 048
     Dates: start: 20050405
  9. SEROQUEL [Suspect]
     Indication: SCHIZOPHRENIA
     Route: 048
     Dates: start: 20020601, end: 20070201
  10. SEROQUEL [Suspect]
     Dosage: 100 MG TO 600 MG
     Route: 048
     Dates: start: 20050406
  11. ZYPREXA [Concomitant]
     Indication: DEPRESSION
     Dosage: 1 MG
  12. ZYPREXA [Concomitant]
     Indication: SCHIZOPHRENIA
     Dosage: 1 MG
  13. SEROQUEL [Suspect]
     Indication: BIPOLAR DISORDER
     Route: 048
     Dates: start: 20020601, end: 20070201
  14. SEROQUEL [Suspect]
     Dosage: 500 MG
     Route: 048
     Dates: start: 20040101
  15. SEROQUEL [Suspect]
     Dosage: 500 MG
     Route: 048
     Dates: start: 20040101
  16. SEROQUEL [Suspect]
     Route: 048
     Dates: start: 20070201
  17. RISPERDAL [Concomitant]
     Indication: SCHIZOPHRENIA
  18. RISPERDAL [Concomitant]
     Indication: DEPRESSION
  19. RISPERDAL [Concomitant]
     Indication: BIPOLAR DISORDER
  20. KLONOPIN [Concomitant]
     Dosage: 2 MG
  21. LITHOBID [Concomitant]
     Route: 048
     Dates: start: 20050405
  22. SEROQUEL [Suspect]
     Dosage: 100 MG TO 600 MG
     Route: 048
     Dates: start: 20050406
  23. ABILIFY [Concomitant]
     Dosage: 30 MG
     Dates: start: 19970101, end: 20090101
  24. ABILIFY [Concomitant]
     Route: 048
     Dates: start: 20050405
  25. EFFEXOR [Concomitant]
     Route: 048
     Dates: start: 20050405
  26. LITHOBID [Concomitant]
     Dosage: 900 MG
  27. CELEXA [Concomitant]
     Dosage: 10-20 MG
     Route: 048
  28. TRICOR [Concomitant]
     Route: 048
     Dates: start: 20061122
  29. ACTOS [Concomitant]
     Route: 048
     Dates: start: 20061122
  30. SEROQUEL [Suspect]
     Dosage: 500 MG
     Route: 048
     Dates: start: 20040101
  31. ASPIRIN [Concomitant]
     Route: 048
     Dates: start: 20050405
  32. GEODON [Concomitant]
  33. MYSOLINE [Concomitant]
     Dosage: 50 MG
  34. CYMBALTA [Concomitant]
     Dosage: 60 MG

REACTIONS (5)
  - DIABETES MELLITUS INADEQUATE CONTROL [None]
  - OBESITY [None]
  - BACK INJURY [None]
  - TYPE 2 DIABETES MELLITUS [None]
  - DIABETES MELLITUS [None]
